FAERS Safety Report 17465581 (Version 2)
Quarter: 2020Q1

REPORT INFORMATION
  Report Type: Spontaneous
  Country: US (occurrence: US)
  Receive Date: 20200227
  Receipt Date: 20200310
  Transmission Date: 20200409
  Serious: No
  Sender: FDA-Public Use
  Company Number: US-BIOGEN-2020BI00843628

PATIENT
  Age: 42 Year
  Sex: Female

DRUGS (1)
  1. PLEGRIDY [Suspect]
     Active Substance: PEGINTERFERON BETA-1A
     Indication: MULTIPLE SCLEROSIS
     Route: 058
     Dates: start: 20191217

REACTIONS (3)
  - Product packaging quantity issue [Unknown]
  - Injection site pruritus [Unknown]
  - Injection site erythema [Recovered/Resolved with Sequelae]

NARRATIVE: CASE EVENT DATE: 20200224
